FAERS Safety Report 16426412 (Version 2)
Quarter: 2019Q3

REPORT INFORMATION
  Report Type: Spontaneous
  Country: GR (occurrence: GR)
  Receive Date: 20190613
  Receipt Date: 20190712
  Transmission Date: 20191004
  Serious: Yes (Other)
  Sender: FDA-Public Use
  Company Number: PHHY2019GR127516

PATIENT
  Age: 54 Year
  Sex: Female

DRUGS (4)
  1. METHOTREXATE. [Suspect]
     Active Substance: METHOTREXATE
     Indication: RHEUMATIC DISORDER
     Dosage: UNK
     Route: 065
  2. CORTISOL ACETATE [Suspect]
     Active Substance: HYDROCORTISONE ACETATE
     Indication: PURPURA
  3. CORTISOL ACETATE [Suspect]
     Active Substance: HYDROCORTISONE ACETATE
     Indication: ARTHRALGIA
     Route: 065
  4. ADALIMUMAB [Suspect]
     Active Substance: ADALIMUMAB
     Indication: RHEUMATIC DISORDER
     Dosage: UNK
     Route: 058

REACTIONS (3)
  - Rheumatic disorder [Unknown]
  - Pneumonia legionella [Unknown]
  - Disease recurrence [Unknown]
